FAERS Safety Report 6382217-2 (Version None)
Quarter: 2009Q3

REPORT INFORMATION
  Report Type: 
  Country: None (occurrence: None)
  Receive Date: 20090930
  Receipt Date: 20090827
  Transmission Date: 20100115
  Serious: Yes (Hospitalization)
  Sender: FDA-Public Use
  Company Number: KR-BRISTOL-MYERS SQUIBB COMPANY-14718050

PATIENT
  Age: 62 Year
  Sex: Male
  Weight: 58 kg

DRUGS (3)
  1. CETUXIMAB [Suspect]
     Indication: GASTROOESOPHAGEAL CANCER
     Dosage: STRENGTH: 5MG/ML
     Route: 042
     Dates: start: 20090623
  2. CISPLATIN [Suspect]
     Indication: GASTROOESOPHAGEAL CANCER
     Dosage: TEMPORARILY DISCONTINUED ON 29JAN2009
     Route: 042
     Dates: start: 20090623
  3. CAPECITABINE [Suspect]
     Indication: GASTROOESOPHAGEAL CANCER
     Dosage: RECENT INF: 26JUN09, TEMPORARILY DISCONTINUED ON 29JAN2009
     Route: 048
     Dates: start: 20090623

REACTIONS (1)
  - CEREBELLAR INFARCTION [None]
